FAERS Safety Report 10105854 (Version 3)
Quarter: 2015Q3

REPORT INFORMATION
  Report Type: Spontaneous
  Country: US (occurrence: US)
  Receive Date: 20140424
  Receipt Date: 20150817
  Transmission Date: 20151125
  Serious: No
  Sender: FDA-Public Use
  Company Number: US-GILEAD-2014-0100268

PATIENT
  Age: 65 Year
  Sex: Female

DRUGS (1)
  1. LETAIRIS [Suspect]
     Active Substance: AMBRISENTAN
     Indication: PULMONARY ARTERIAL HYPERTENSION
     Dosage: 5 MG, QD
     Route: 065
     Dates: start: 20130429, end: 20140412

REACTIONS (7)
  - Tremor [Unknown]
  - Epistaxis [Unknown]
  - Staphylococcal infection [Unknown]
  - Muscle spasms [Unknown]
  - Acne [Unknown]
  - Furuncle [Unknown]
  - Flushing [Unknown]
